FAERS Safety Report 14246064 (Version 2)
Quarter: 2017Q4

REPORT INFORMATION
  Report Type: Report from Study
  Country: US (occurrence: US)
  Receive Date: 20171204
  Receipt Date: 20171212
  Transmission Date: 20180321
  Serious: Yes (Death)
  Sender: FDA-Public Use
  Company Number: US-BIOGEN-2017BI00490820

PATIENT
  Age: 30 Year
  Sex: Female

DRUGS (1)
  1. TYSABRI [Suspect]
     Active Substance: NATALIZUMAB
     Indication: MULTIPLE SCLEROSIS
     Route: 065
     Dates: start: 20170608

REACTIONS (4)
  - Fluid intake reduced [Unknown]
  - Urinary tract infection [Recovered/Resolved]
  - Food refusal [Unknown]
  - Urosepsis [Fatal]

NARRATIVE: CASE EVENT DATE: 20171123
